FAERS Safety Report 13080245 (Version 3)
Quarter: 2017Q1

REPORT INFORMATION
  Report Type: Report from Study
  Country: GB (occurrence: GB)
  Receive Date: 20170103
  Receipt Date: 20170214
  Transmission Date: 20170428
  Serious: Yes (Hospitalization, Other)
  Sender: FDA-Public Use
  Company Number: GB-JNJFOC-20161214920

PATIENT
  Age: 52 Year
  Sex: Female
  Weight: 57.5 kg

DRUGS (6)
  1. STELARA [Suspect]
     Active Substance: USTEKINUMAB
     Indication: PSORIATIC ARTHROPATHY
     Route: 058
     Dates: start: 201602
  2. STELARA [Suspect]
     Active Substance: USTEKINUMAB
     Indication: PSORIATIC ARTHROPATHY
     Dosage: 13 INJECTIONS
     Route: 058
     Dates: start: 20151218
  3. TACROLIMUS. [Concomitant]
     Active Substance: TACROLIMUS
     Route: 048
  4. CYCLIZINE [Concomitant]
     Active Substance: CYCLIZINE
     Route: 048
  5. MYCOPHENOLATE MOFETIL. [Concomitant]
     Active Substance: MYCOPHENOLATE MOFETIL
     Route: 048
  6. PREDNISOLONE. [Concomitant]
     Active Substance: PREDNISOLONE
     Route: 048

REACTIONS (3)
  - Neuropathic arthropathy [Unknown]
  - Blood creatinine increased [Unknown]
  - Diabetic foot infection [Recovered/Resolved]

NARRATIVE: CASE EVENT DATE: 201604
